FAERS Safety Report 8024749-7 (Version None)
Quarter: 2012Q1

REPORT INFORMATION
  Report Type: 
  Country: None (occurrence: None)
  Receive Date: 20120105
  Receipt Date: 20120103
  Transmission Date: 20120608
  Serious: Yes (Hospitalization)
  Sender: FDA-Public Use
  Company Number: US-ABBOTT-11P-163-0881894-00

PATIENT
  Sex: Female
  Weight: 81.266 kg

DRUGS (4)
  1. FOLIC ACID [Concomitant]
     Indication: PSORIATIC ARTHROPATHY
  2. HUMIRA [Suspect]
     Indication: PSORIATIC ARTHROPATHY
     Dates: start: 20090501, end: 20110908
  3. METHOTREXATE [Concomitant]
     Indication: PSORIATIC ARTHROPATHY
  4. ESTRADIAL [Concomitant]
     Indication: HORMONE REPLACEMENT THERAPY

REACTIONS (7)
  - NIGHT SWEATS [None]
  - APHAGIA [None]
  - PYREXIA [None]
  - HEADACHE [None]
  - CHILLS [None]
  - MALAISE [None]
  - HISTOPLASMOSIS [None]
